FAERS Safety Report 9494277 (Version 1)
Quarter: 2013Q3

REPORT INFORMATION
  Report Type: Report from Study
  Country: DE (occurrence: DE)
  Receive Date: 20130903
  Receipt Date: 20130903
  Transmission Date: 20140515
  Serious: Yes (Other)
  Sender: FDA-Public Use
  Company Number: DE-BAYER-2013-105945

PATIENT
  Age: 74 Year
  Sex: Male

DRUGS (1)
  1. ASPIRIN [Suspect]
     Dosage: UNK

REACTIONS (1)
  - Transient ischaemic attack [None]
